FAERS Safety Report 5653680-7 (Version None)
Quarter: 2008Q1

REPORT INFORMATION
  Report Type: 
  Country: None (occurrence: None)
  Receive Date: 20080306
  Receipt Date: 20080225
  Transmission Date: 20080703
  Serious: Yes (Death)
  Sender: FDA-Public Use
  Company Number: JP-TYCO HEALTHCARE/MALLINCKRODT-T200800310

PATIENT

DRUGS (2)
  1. TOFRANIL [Suspect]
     Dates: end: 20071201
  2. CARBAMAZEPINE [Suspect]
     Dates: end: 20071201

REACTIONS (1)
  - COMPLETED SUICIDE [None]
